FAERS Safety Report 18260801 (Version 2)
Quarter: 2020Q4

REPORT INFORMATION
  Report Type: Spontaneous
  Country: US (occurrence: US)
  Receive Date: 20200914
  Receipt Date: 20201023
  Transmission Date: 20210113
  Serious: No
  Sender: FDA-Public Use
  Company Number: US-BAUSCH-BL-2020-025018

PATIENT
  Sex: Male

DRUGS (1)
  1. LATANOPROST OPHTHALMIC SOLUTION 0.005% [Suspect]
     Active Substance: LATANOPROST
     Indication: PRODUCT USED FOR UNKNOWN INDICATION
     Dosage: GTT
     Route: 047

REACTIONS (3)
  - Product packaging difficult to open [Unknown]
  - Product package associated injury [Unknown]
  - Wrong technique in product usage process [Unknown]
